FAERS Safety Report 5004038-5 (Version None)
Quarter: 2006Q2

REPORT INFORMATION
  Report Type: 
  Country: None (occurrence: None)
  Receive Date: 20060515
  Receipt Date: 20060515
  Transmission Date: 20061013
  Serious: Yes (Death)
  Sender: FDA-Public Use
  Company Number: None

PATIENT
  Sex: Male
  Weight: 79.8331 kg

DRUGS (2)
  1. TOPOTECAM 3.0 MG/M2 [Suspect]
     Indication: SMALL CELL LUNG CANCER STAGE UNSPECIFIED
     Dosage: 5.7 MG, D1, 8, 15 Q 28 IV
     Route: 042
     Dates: start: 20060127, end: 20060505
  2. VELCADE [Suspect]
     Indication: SMALL CELL LUNG CANCER STAGE UNSPECIFIED
     Dosage: 3.0 MG D 1, 8, 15 Q 28 IV
     Route: 042
     Dates: start: 20060127, end: 20060505

REACTIONS (4)
  - ATRIOVENTRICULAR BLOCK [None]
  - CARDIO-RESPIRATORY ARREST [None]
  - CONDUCTION DISORDER [None]
  - DYSPNOEA [None]
